FAERS Safety Report 10629499 (Version 1)
Quarter: 2014Q4

REPORT INFORMATION
  Report Type: Spontaneous
  Country: None (occurrence: None)
  Receive Date: 20141203
  Receipt Date: 20141203
  Transmission Date: 20150529
  Serious: No
  Sender: FDA-Public Use
  Company Number: None

PATIENT
  Age: 26 Year
  Sex: Male
  Weight: 80 kg

DRUGS (1)
  1. PROPECIA [Suspect]
     Active Substance: FINASTERIDE
     Indication: ALOPECIA
     Dosage: 1 PILL TAKEN BY MOUTH
     Route: 048
     Dates: start: 20130810, end: 20130830

REACTIONS (5)
  - Mood swings [None]
  - Penis disorder [None]
  - Mental disorder [None]
  - Depression [None]
  - Erectile dysfunction [None]
